FAERS Safety Report 5957169-7 (Version None)
Quarter: 2008Q4

REPORT INFORMATION
  Report Type: 
  Country: None (occurrence: None)
  Receive Date: 20081118
  Receipt Date: 20081105
  Transmission Date: 20090506
  Serious: Yes (Other)
  Sender: FDA-Public Use
  Company Number: JP-ROCHE-542024

PATIENT
  Age: 56 Year
  Sex: Male

DRUGS (8)
  1. PEG-INTERFERON A-2A (RO 25-8310) [Suspect]
     Route: 058
     Dates: start: 20070928, end: 20080104
  2. RIBAVIRIN [Suspect]
     Route: 048
     Dates: start: 20070928, end: 20071025
  3. RIBAVIRIN [Suspect]
     Dosage: DOSE DECREASED
     Route: 048
     Dates: start: 20071026, end: 20080104
  4. LORAZEPAM [Suspect]
     Indication: DRUG USE FOR UNKNOWN INDICATION
     Route: 048
  5. ACINON [Concomitant]
     Route: 048
     Dates: start: 20070928, end: 20080104
  6. PROMAC [Concomitant]
     Route: 048
     Dates: start: 20070928, end: 20080104
  7. DOGMATYL [Concomitant]
  8. LENDORMIN [Concomitant]
     Route: 048

REACTIONS (1)
  - MYASTHENIA GRAVIS [None]
